FAERS Safety Report 9969381 (Version 6)
Quarter: 2014Q2

REPORT INFORMATION
  Report Type: Report from Study
  Country: MY (occurrence: MY)
  Receive Date: 20140306
  Receipt Date: 20140522
  Transmission Date: 20141212
  Serious: Yes (Hospitalization)
  Sender: FDA-Public Use
  Company Number: MY-ROCHE-1282313

PATIENT
  Age: 59 Year
  Sex: Male
  Weight: 50 kg

DRUGS (23)
  1. TRASTUZUMAB [Suspect]
     Indication: HER-2 POSITIVE GASTRIC CANCER
     Dosage: INITIAL DOSE OF 8 MG/KG IV FOLLOWED BY 6 MG/KG IV EVERY 3 WEEKS
     Route: 042
     Dates: start: 20130902, end: 20130902
  2. TRASTUZUMAB [Suspect]
     Dosage: LAST DOSE PRIOR TO SERIOUS ADVERSE EVENT: 11/FEB/2014
     Route: 042
  3. CAPECITABINE [Suspect]
     Indication: HER-2 POSITIVE GASTRIC CANCER
     Dosage: BID
     Route: 048
     Dates: start: 20130903, end: 20130907
  4. CAPECITABINE [Suspect]
     Route: 048
     Dates: end: 20130916
  5. CISPLATIN [Suspect]
     Indication: HER-2 POSITIVE GASTRIC CANCER
     Dosage: Q3S
     Route: 042
     Dates: start: 20130902, end: 20130902
  6. INSULATARD [Concomitant]
     Indication: DIABETES MELLITUS
     Dosage: DOSE UNIT=U
     Route: 058
     Dates: start: 2009
  7. METFORMIN [Concomitant]
     Indication: DIABETES MELLITUS
     Dosage: SELECT IF ONGOING=YES DOSE UNIT=G
     Route: 048
     Dates: start: 1993
  8. GLICLAZIDE [Concomitant]
     Indication: DIABETES MELLITUS
     Dosage: SELECT IF ONGOING=YES
     Route: 048
     Dates: start: 1998
  9. GRISEOFULVIN [Concomitant]
     Dosage: INDICATION: ANTIFUNGAL
     Route: 048
     Dates: start: 20130927
  10. SIMVASTATIN [Concomitant]
     Indication: HYPERCHOLESTEROLAEMIA
     Dosage: SELECT IF ONGOING=YES
     Route: 048
     Dates: start: 2009
  11. MAXOLON [Concomitant]
     Indication: DYSPEPSIA
     Dosage: SELECT IF ONGOING=NO
     Route: 048
     Dates: start: 20130903, end: 20130905
  12. MAXOLON [Concomitant]
     Indication: FLATULENCE
     Route: 042
     Dates: start: 20140228, end: 20140302
  13. MAXOLON [Concomitant]
     Indication: GASTROOESOPHAGEAL REFLUX DISEASE
     Route: 048
     Dates: start: 20140211, end: 20140221
  14. MAXOLON [Concomitant]
     Indication: NAUSEA
  15. MAXOLON [Concomitant]
     Indication: VOMITING
  16. LORAZEPAM [Concomitant]
     Indication: INSOMNIA
     Dosage: SELECT IF ONGOING=NO DOSE UNIT=G
     Route: 048
     Dates: start: 20140223, end: 20140224
  17. ALPRAZOLAM [Concomitant]
     Indication: INSOMNIA
     Dosage: SELECT IF ONGOING=NO
     Route: 048
     Dates: start: 20140211, end: 20140221
  18. PARACETAMOL [Concomitant]
     Dosage: INDICATION PAIN CONTROLLER
     Route: 048
     Dates: start: 20140212, end: 20140221
  19. DEXAMETHASONE [Concomitant]
  20. CEFUROXIME [Concomitant]
  21. LORATADINE [Concomitant]
  22. EMEND [Concomitant]
  23. PERTUZUMAB [Suspect]
     Indication: HER-2 POSITIVE GASTRIC CANCER
     Route: 042
     Dates: start: 20130902, end: 20140211

REACTIONS (3)
  - Dehydration [Not Recovered/Not Resolved]
  - Diarrhoea [Recovered/Resolved]
  - Diarrhoea [Recovered/Resolved]
